FAERS Safety Report 4580716-7 (Version None)
Quarter: 2005Q1

REPORT INFORMATION
  Report Type: 
  Country: None (occurrence: None)
  Receive Date: 20050214
  Receipt Date: 20040517
  Transmission Date: 20050727
  Serious: No
  Sender: FDA-Public Use
  Company Number: US-GLAXOSMITHKLINE-A0511224A

PATIENT
  Age: 54 Year
  Sex: Female
  Weight: 68.2 kg

DRUGS (9)
  1. LAMICTAL [Suspect]
     Dosage: 75MG PER DAY
     Route: 048
     Dates: start: 20040301, end: 20040401
  2. IBUPROFEN [Concomitant]
     Route: 048
  3. VICODIN [Concomitant]
     Route: 048
  4. PERCOCET [Concomitant]
     Route: 048
  5. LORAZEPAM [Concomitant]
     Route: 048
  6. VANCERIL [Concomitant]
     Route: 048
  7. SEREVENT [Concomitant]
  8. LIPITOR [Concomitant]
     Route: 048
  9. UNSPECIFIED MEDICATION [Concomitant]
     Route: 048

REACTIONS (2)
  - DIPLOPIA [None]
  - VISION BLURRED [None]
